FAERS Safety Report 9369764 (Version 3)
Quarter: 2013Q4

REPORT INFORMATION
  Report Type: Spontaneous
  Country: US (occurrence: US)
  Receive Date: 20130626
  Receipt Date: 20131206
  Transmission Date: 20140711
  Serious: Yes (Other)
  Sender: FDA-Public Use
  Company Number: US-ASTELLAS-2013US006543

PATIENT
  Age: 44 Year
  Sex: Female

DRUGS (1)
  1. TARCEVA [Suspect]
     Indication: LUNG CANCER METASTATIC
     Dosage: UNK
     Route: 048
     Dates: start: 20130125, end: 20130424

REACTIONS (2)
  - Eye disorder [Unknown]
  - Corneal disorder [Recovering/Resolving]
